FAERS Safety Report 6489097-5 (Version None)
Quarter: 2009Q4

REPORT INFORMATION
  Report Type: 
  Country: None (occurrence: None)
  Receive Date: 20091123
  Receipt Date: 20090903
  Transmission Date: 20100525
  Serious: No
  Sender: FDA-Public Use
  Company Number: 8051533

PATIENT
  Age: 47 Year
  Sex: Male

DRUGS (3)
  1. CIMZIA [Suspect]
     Dosage: 400 MG
     Dates: start: 20090220
  2. PREDNISOLONE [Concomitant]
  3. FLAGYL [Concomitant]

REACTIONS (1)
  - CROHN'S DISEASE [None]
